FAERS Safety Report 7543697-X (Version None)
Quarter: 2011Q2

REPORT INFORMATION
  Report Type: 
  Country: None (occurrence: None)
  Receive Date: 20110613
  Receipt Date: 20030805
  Transmission Date: 20111010
  Serious: Yes (Death)
  Sender: FDA-Public Use
  Company Number: PHBS2003KR14625

PATIENT

DRUGS (1)
  1. TRILEPTAL [Suspect]
     Indication: PARTIAL SEIZURES WITH SECONDARY GENERALISATION
     Dosage: 300 MG, QD
     Route: 048
     Dates: start: 19981028

REACTIONS (3)
  - BRAIN HERNIATION [None]
  - CEREBRAL INFARCTION [None]
  - BRAIN OEDEMA [None]
